FAERS Safety Report 13601199 (Version 6)
Quarter: 2018Q3

REPORT INFORMATION
  Report Type: Report from Study
  Country: GB (occurrence: GB)
  Receive Date: 20170601
  Receipt Date: 20180920
  Transmission Date: 20181010
  Serious: Yes (Hospitalization)
  Sender: FDA-Public Use
  Company Number: PHHO2016GB015112

PATIENT
  Age: 12 Year
  Sex: Male
  Weight: 48.46 kg

DRUGS (7)
  1. TRAMETINIB [Suspect]
     Active Substance: TRAMETINIB
     Dosage: 1.25 MG, QD
     Route: 048
     Dates: start: 20161012, end: 20161012
  2. TRAMETINIB [Suspect]
     Active Substance: TRAMETINIB
     Dosage: 1.25 MG, QD
     Route: 048
     Dates: start: 20161021
  3. LANSOPRAZOLE. [Concomitant]
     Active Substance: LANSOPRAZOLE
     Indication: GASTRITIS
     Dosage: 30 MG, QD
     Route: 048
     Dates: start: 20160713
  4. METFORMIN [Concomitant]
     Active Substance: METFORMIN HYDROCHLORIDE
     Indication: GLUCOSE TOLERANCE IMPAIRED
     Dosage: 500 MG, BID
     Route: 048
     Dates: start: 20160713
  5. TRAMETINIB [Suspect]
     Active Substance: TRAMETINIB
     Indication: ASTROCYTOMA
     Dosage: 1.25 MG, QD
     Route: 048
     Dates: start: 20160727, end: 20161011
  6. LEVETIRACETAM. [Concomitant]
     Active Substance: LEVETIRACETAM
     Indication: SEIZURE
     Dosage: 1200 MG, BID
     Route: 048
     Dates: start: 20160713
  7. THYROXINE [Concomitant]
     Active Substance: LEVOTHYROXINE
     Indication: HYPOTHYROIDISM
     Dosage: 80 MG, QD
     Route: 048
     Dates: start: 20160713

REACTIONS (6)
  - Diarrhoea [Recovered/Resolved]
  - Device related infection [Recovered/Resolved]
  - Abdominal pain [Recovered/Resolved]
  - Hypotension [Recovered/Resolved]
  - Diarrhoea [Recovered/Resolved]
  - Anal haemorrhage [Recovered/Resolved]

NARRATIVE: CASE EVENT DATE: 20161012
